FAERS Safety Report 9790233 (Version 1)
Quarter: 2013Q4

REPORT INFORMATION
  Report Type: Spontaneous
  Country: US (occurrence: US)
  Receive Date: 20131231
  Receipt Date: 20131231
  Transmission Date: 20140711
  Serious: No
  Sender: FDA-Public Use
  Company Number: US-B.I. PHARMACEUTICALS,INC./RIDGEFIELD-2013-BI-43400BP

PATIENT
  Age: 79 Year
  Sex: Male
  Weight: 78 kg

DRUGS (3)
  1. FLOMAX CAPSULES [Suspect]
     Indication: BENIGN PROSTATIC HYPERPLASIA
     Dosage: 0.8 MG
     Route: 048
     Dates: start: 2003, end: 20131220
  2. PRAVACHOL [Concomitant]
     Indication: BLOOD CHOLESTEROL INCREASED
     Dosage: 80 MG
     Route: 048
     Dates: start: 2003
  3. BYSTOLIC [Concomitant]
     Indication: VENTRICULAR EXTRASYSTOLES
     Dosage: 5 MG
     Route: 048
     Dates: start: 2010

REACTIONS (2)
  - Syncope [Recovered/Resolved]
  - Diabetes mellitus [Not Recovered/Not Resolved]
